FAERS Safety Report 25719510 (Version 1)
Quarter: 2025Q3

REPORT INFORMATION
  Report Type: Spontaneous
  Country: EU (occurrence: EU)
  Receive Date: 20250824
  Receipt Date: 20250824
  Transmission Date: 20251020
  Serious: Yes (Death, Hospitalization, Other)
  Sender: BEIGENE
  Company Number: None

PATIENT
  Age: 64 Year
  Weight: 66 kg

DRUGS (4)
  1. BRUKINSA [Suspect]
     Active Substance: ZANUBRUTINIB
     Indication: Chronic lymphocytic leukaemia
     Dosage: 320MG 1-0-0-0 (ONCE IN MORNING)
  2. BRUKINSA [Suspect]
     Active Substance: ZANUBRUTINIB
     Dosage: 320MG 1-0-0-0 (ONCE IN MORNING)
     Route: 048
  3. BRUKINSA [Suspect]
     Active Substance: ZANUBRUTINIB
     Dosage: 320MG 1-0-0-0 (ONCE IN MORNING)
     Route: 048
  4. BRUKINSA [Suspect]
     Active Substance: ZANUBRUTINIB
     Dosage: 320MG 1-0-0-0 (ONCE IN MORNING)

REACTIONS (3)
  - Septic shock [Fatal]
  - Pancytopenia [Unknown]
  - Drug monitoring procedure incorrectly performed [Unknown]
